FAERS Safety Report 9324765 (Version 1)
Quarter: 2013Q2

REPORT INFORMATION
  Report Type: Spontaneous
  Country: TW (occurrence: TW)
  Receive Date: 20130603
  Receipt Date: 20130603
  Transmission Date: 20140414
  Serious: Yes (Other)
  Sender: FDA-Public Use
  Company Number: TW-ALEXION PHARMACEUTICALS INC.-A201301205

PATIENT
  Age: 4 Year
  Sex: Male
  Weight: 18 kg

DRUGS (1)
  1. SOLIRIS 300MG [Suspect]
     Indication: HAEMOLYTIC URAEMIC SYNDROME
     Dosage: 300 MG, UNK
     Route: 042
     Dates: start: 20130512

REACTIONS (4)
  - Oliguria [Unknown]
  - Cerebral thrombosis [Unknown]
  - Hypertension [Unknown]
  - Abdominal infection [Unknown]
